FAERS Safety Report 10138637 (Version 1)
Quarter: 2014Q2

REPORT INFORMATION
  Report Type: Spontaneous
  Country: US (occurrence: US)
  Receive Date: 20140429
  Receipt Date: 20140429
  Transmission Date: 20141212
  Serious: Yes (Death)
  Sender: FDA-Public Use
  Company Number: US-JNJFOC-20140413854

PATIENT
  Sex: Male

DRUGS (7)
  1. ZYTIGA [Suspect]
     Indication: PROSTATE CANCER
     Route: 048
     Dates: start: 20131114, end: 20140217
  2. BICALUTAMIDE [Concomitant]
     Route: 065
  3. LOVASTATIN [Concomitant]
     Route: 065
  4. ACETYLSALICYLIC ACID [Concomitant]
     Route: 065
  5. OXYCODONE [Concomitant]
     Route: 065
  6. ATENOLOL [Concomitant]
     Route: 065
  7. LISINOPRIL [Concomitant]
     Route: 065

REACTIONS (1)
  - Cardiac arrest [Fatal]
